FAERS Safety Report 5955939-2 (Version None)
Quarter: 2008Q4

REPORT INFORMATION
  Report Type: 
  Country: None (occurrence: None)
  Receive Date: 20081112
  Receipt Date: 20081029
  Transmission Date: 20090506
  Serious: Yes (Other)
  Sender: FDA-Public Use
  Company Number: 430017K08USA

PATIENT
  Age: 58 Year
  Sex: Female
  Weight: 82 kg

DRUGS (4)
  1. NOVANTRONE [Suspect]
     Indication: MULTIPLE SCLEROSIS
     Dosage: NOT REPORTED, 1 IN 3 MONTHS, INTRAVENOUS (NOT OTHERWISE SPECIFIED)
     Dates: start: 20050101, end: 20060101
  2. REBIF [Suspect]
     Indication: MULTIPLE SCLEROSIS
     Dosage: 44 MG, 3 IN 1 WEEKS
     Dates: start: 20070501, end: 20081027
  3. NEURONTIN [Concomitant]
  4. THYROLAR (NOVOTHYRAL) [Concomitant]

REACTIONS (5)
  - CONDUCTION DISORDER [None]
  - ELECTROENCEPHALOGRAM ABNORMAL [None]
  - HEART RATE INCREASED [None]
  - RED BLOOD CELL COUNT DECREASED [None]
  - WHITE BLOOD CELL COUNT DECREASED [None]
